FAERS Safety Report 23032267 (Version 1)
Quarter: 2023Q4

REPORT INFORMATION
  Report Type: Report from Study
  Country: US (occurrence: US)
  Receive Date: 20231005
  Receipt Date: 20231005
  Transmission Date: 20240109
  Serious: Yes (Hospitalization, Other)
  Sender: FDA-Public Use
  Company Number: US-ABBVIE-5406828

PATIENT
  Sex: Female

DRUGS (2)
  1. HUMIRA [Suspect]
     Active Substance: ADALIMUMAB
     Indication: Colitis ulcerative
     Dosage: FORM STRENGTH: 40 MG,  CITRATE FREE
     Route: 058
     Dates: start: 20230808
  2. HUMIRA [Suspect]
     Active Substance: ADALIMUMAB
     Dosage: FORM STRENGTH: 40 MG, CITRATE FREE?DRUG END DATE AUG 2023
     Route: 058
     Dates: start: 20230802

REACTIONS (8)
  - Gastritis [Recovered/Resolved with Sequelae]
  - Rectal haemorrhage [Unknown]
  - Feeling abnormal [Unknown]
  - Hypophagia [Unknown]
  - Malaise [Not Recovered/Not Resolved]
  - Fluid intake reduced [Unknown]
  - Clostridium difficile infection [Unknown]
  - Candida infection [Unknown]

NARRATIVE: CASE EVENT DATE: 20230101
